FAERS Safety Report 20918450 (Version 1)
Quarter: 2022Q2

REPORT INFORMATION
  Report Type: Spontaneous
  Country: US (occurrence: None)
  Receive Date: 20220603
  Receipt Date: 20220603
  Transmission Date: 20220720
  Serious: No
  Sender: FDA-Public Use
  Company Number: None

PATIENT
  Sex: Female

DRUGS (1)
  1. LENALIDOMIDE [Suspect]
     Active Substance: LENALIDOMIDE
     Indication: Plasma cell myeloma
     Dosage: 5MG DAILY 21 ON 7 OFF BY MOUTH??- ON HOLD?
     Route: 048
     Dates: start: 202203

REACTIONS (2)
  - Renal disorder [None]
  - Therapy interrupted [None]
